FAERS Safety Report 4589399-3 (Version None)
Quarter: 2005Q1

REPORT INFORMATION
  Report Type: 
  Country: None (occurrence: None)
  Receive Date: 20050216
  Receipt Date: 20050125
  Transmission Date: 20050727
  Serious: Yes (Hospitalization, Other)
  Sender: FDA-Public Use
  Company Number: US_0502111711

PATIENT
  Age: 74 Year
  Sex: Female
  Weight: 104 kg

DRUGS (1)
  1. HUMULIN-HUMAN INSULIN (RDNA) : 40% REGULAR,  60% NPH (H [Suspect]
     Indication: DIABETES MELLITUS
     Dosage: 58 U DAY
     Dates: start: 20020101

REACTIONS (11)
  - ABDOMINAL PAIN [None]
  - BLINDNESS UNILATERAL [None]
  - DIZZINESS [None]
  - INFLUENZA [None]
  - LUNG DISORDER [None]
  - MACULAR DEGENERATION [None]
  - PHARMACEUTICAL PRODUCT COMPLAINT [None]
  - PHARYNGOLARYNGEAL PAIN [None]
  - PROCEDURAL COMPLICATION [None]
  - RETINAL DETACHMENT [None]
  - SCAR [None]
